FAERS Safety Report 7156368-9 (Version None)
Quarter: 2010Q4

REPORT INFORMATION
  Report Type: 
  Country: None (occurrence: None)
  Receive Date: 20101214
  Receipt Date: 20101202
  Transmission Date: 20110411
  Serious: Yes (Hospitalization)
  Sender: FDA-Public Use
  Company Number: JP-ROCHE-742068

PATIENT
  Age: 50 Year
  Sex: Female
  Weight: 43 kg

DRUGS (4)
  1. CELLCEPT [Suspect]
     Indication: PROPHYLAXIS AGAINST TRANSPLANT REJECTION
     Dosage: DOSAGE IS UNCERTAIN.
     Route: 048
  2. TACROLIMUS [Concomitant]
     Dosage: DOSAGE IS UNCERTAIN.
     Route: 065
  3. ADRENAL CORTEX EXTRACT [Concomitant]
     Dosage: DOSAGE IS UNCERTAIN
     Route: 065
  4. ADRENAL CORTEX EXTRACT [Concomitant]
     Dosage: NOTE: DOSAGE IS UNCERTAIN.
     Route: 065

REACTIONS (1)
  - BILE DUCT STENOSIS [None]
